FAERS Safety Report 20652223 (Version 1)
Quarter: 2022Q1

REPORT INFORMATION
  Report Type: Report from Study
  Country: US (occurrence: US)
  Receive Date: 20220330
  Receipt Date: 20220330
  Transmission Date: 20220423
  Serious: No
  Sender: FDA-Public Use
  Company Number: US-NOVARTISTESTPH-NVSC2022US071184

PATIENT
  Sex: Male

DRUGS (1)
  1. ENTRESTO [Suspect]
     Active Substance: SACUBITRIL\VALSARTAN
     Indication: Product used for unknown indication
     Dosage: 1 DOSAGE FORM, BID (1/2 TABLET TWICE A DAY)
     Route: 048

REACTIONS (4)
  - Hypotension [Unknown]
  - Dyspnoea [Unknown]
  - Weight increased [Unknown]
  - Wrong technique in product usage process [Unknown]
